FAERS Safety Report 6626332-4 (Version None)
Quarter: 2010Q1

REPORT INFORMATION
  Report Type: 
  Country: None (occurrence: None)
  Receive Date: 20100310
  Receipt Date: 20100303
  Transmission Date: 20100710
  Serious: Yes (Hospitalization)
  Sender: FDA-Public Use
  Company Number: CHPA2010FR04388

PATIENT
  Age: 1 Year
  Sex: Male
  Weight: 14.8 kg

DRUGS (2)
  1. SCOPOLAMINE [Suspect]
     Indication: SALIVARY HYPERSECRETION
     Dosage: 0.25 DF, Q72H
     Route: 062
     Dates: start: 20090119, end: 20100101
  2. SCOPOLAMINE [Suspect]
     Dosage: 0.50 DF, Q72H
     Route: 062
     Dates: start: 20100119

REACTIONS (4)
  - DISABILITY [None]
  - DRUG INEFFECTIVE FOR UNAPPROVED INDICATION [None]
  - OVERDOSE [None]
  - WRONG TECHNIQUE IN DRUG USAGE PROCESS [None]
